FAERS Safety Report 5107862-3 (Version None)
Quarter: 2006Q3

REPORT INFORMATION
  Report Type: 
  Country: None (occurrence: None)
  Receive Date: 20060919
  Receipt Date: 20060907
  Transmission Date: 20061208
  Serious: Yes (Hospitalization, Other)
  Sender: FDA-Public Use
  Company Number: US-JNJFOC-20060901387

PATIENT
  Sex: Female
  Weight: 68.04 kg

DRUGS (1)
  1. ORTHO EVRA [Suspect]
     Indication: MENORRHAGIA
     Route: 062

REACTIONS (9)
  - ATELECTASIS [None]
  - FATIGUE [None]
  - LIMB INJURY [None]
  - MITRAL VALVE INCOMPETENCE [None]
  - PLEURITIC PAIN [None]
  - PNEUMONIA [None]
  - PULMONARY EMBOLISM [None]
  - SYNOVIAL CYST [None]
  - WEIGHT INCREASED [None]
